FAERS Safety Report 9345603 (Version 1)
Quarter: 2013Q2

REPORT INFORMATION
  Report Type: Spontaneous
  Country: US (occurrence: US)
  Receive Date: 20130613
  Receipt Date: 20130613
  Transmission Date: 20140414
  Serious: No
  Sender: FDA-Public Use
  Company Number: US-009507513-1306USA000984

PATIENT
  Age: 22 Year
  Sex: Female
  Weight: 63.95 kg

DRUGS (2)
  1. IMPLANON [Suspect]
     Indication: CONTRACEPTION
     Dosage: 1 DF, UNK
     Route: 059
     Dates: start: 201210
  2. CHANTIX [Suspect]

REACTIONS (5)
  - Menstruation irregular [Unknown]
  - Metrorrhagia [Recovered/Resolved]
  - Amenorrhoea [Unknown]
  - Menstruation normal [Unknown]
  - Fatigue [Unknown]
